FAERS Safety Report 16284138 (Version 2)
Quarter: 2020Q4

REPORT INFORMATION
  Report Type: Spontaneous
  Country: US (occurrence: US)
  Receive Date: 20190507
  Receipt Date: 20201029
  Transmission Date: 20210113
  Serious: Yes (Other)
  Sender: FDA-Public Use
  Company Number: US-ASTRAZENECA-2019SE60102

PATIENT
  Age: 25876 Day
  Sex: Female
  Weight: 98 kg

DRUGS (49)
  1. PRILOSEC [Suspect]
     Active Substance: OMEPRAZOLE MAGNESIUM
     Indication: GASTROOESOPHAGEAL REFLUX DISEASE
     Dosage: GENERIC
     Route: 048
     Dates: start: 20130319
  2. AMOXICILLIN-POTASSIUM CLAVULANATE [Concomitant]
     Active Substance: AMOXICILLIN\CLAVULANATE POTASSIUM
     Indication: INFECTION
     Route: 065
     Dates: start: 200904, end: 201402
  3. CLONIDINE. [Concomitant]
     Active Substance: CLONIDINE
     Indication: BLOOD PRESSURE ABNORMAL
     Route: 065
     Dates: start: 201007, end: 201404
  4. TYLENOL [Concomitant]
     Active Substance: ACETAMINOPHEN
     Indication: ANALGESIC THERAPY
     Route: 065
     Dates: start: 2000
  5. VITAMIN B12 [Concomitant]
     Active Substance: CYANOCOBALAMIN
     Indication: VITAMIN SUPPLEMENTATION
     Route: 065
     Dates: start: 2007
  6. DYNACIRC [Concomitant]
     Active Substance: ISRADIPINE
     Route: 065
     Dates: start: 20070802
  7. GLIPIZIDE. [Concomitant]
     Active Substance: GLIPIZIDE
     Route: 065
     Dates: start: 20070802
  8. HYDROCODONE-APAP [Concomitant]
     Active Substance: ACETAMINOPHEN\HYDROCODONE
     Route: 065
     Dates: start: 20091111
  9. NEOMY-POLY-DEXAMET [Concomitant]
     Route: 065
     Dates: start: 20110707
  10. LABETALOL [Concomitant]
     Active Substance: LABETALOL\LABETALOL HYDROCHLORIDE
     Route: 065
     Dates: start: 20131125
  11. CRESTOR [Concomitant]
     Active Substance: ROSUVASTATIN CALCIUM
     Route: 048
  12. NEXIUM [Suspect]
     Active Substance: ESOMEPRAZOLE MAGNESIUM
     Indication: GASTROOESOPHAGEAL REFLUX DISEASE
     Route: 048
  13. PRILOSEC [Suspect]
     Active Substance: OMEPRAZOLE MAGNESIUM
     Indication: GASTROOESOPHAGEAL REFLUX DISEASE
     Dosage: GENERIC
     Route: 065
     Dates: start: 20090305
  14. PRILOSEC [Suspect]
     Active Substance: OMEPRAZOLE MAGNESIUM
     Indication: GASTROOESOPHAGEAL REFLUX DISEASE
     Dosage: GENERIC
     Route: 065
     Dates: start: 20170404
  15. METOPROLOL TARTRATE. [Concomitant]
     Active Substance: METOPROLOL TARTRATE
     Indication: BLOOD PRESSURE ABNORMAL
     Route: 065
     Dates: start: 200708, end: 201207
  16. JANUVIA [Concomitant]
     Active Substance: SITAGLIPTIN PHOSPHATE
     Indication: DIABETES MELLITUS
     Route: 065
     Dates: start: 200802, end: 201202
  17. PRILOSEC OTC [Suspect]
     Active Substance: OMEPRAZOLE MAGNESIUM
     Route: 048
  18. PRILOSEC [Suspect]
     Active Substance: OMEPRAZOLE MAGNESIUM
     Indication: GASTROOESOPHAGEAL REFLUX DISEASE
     Route: 048
     Dates: start: 20101214, end: 20151212
  19. PRILOSEC [Suspect]
     Active Substance: OMEPRAZOLE MAGNESIUM
     Indication: GASTROOESOPHAGEAL REFLUX DISEASE
     Dosage: GENERIC
     Route: 065
     Dates: start: 20090305
  20. LISINOPRIL. [Concomitant]
     Active Substance: LISINOPRIL
     Indication: BLOOD PRESSURE ABNORMAL
     Route: 065
     Dates: start: 200709, end: 201311
  21. CICLOPIROX. [Concomitant]
     Active Substance: CICLOPIROX
     Route: 065
     Dates: start: 20080204
  22. HYDROCODONE-HOMATROPINE [Concomitant]
     Route: 065
     Dates: start: 20090427
  23. ZOLPIDEM [Concomitant]
     Active Substance: ZOLPIDEM TARTRATE
     Route: 065
     Dates: start: 20130706
  24. NEXIUM [Suspect]
     Active Substance: ESOMEPRAZOLE MAGNESIUM
     Indication: GASTROOESOPHAGEAL REFLUX DISEASE
     Route: 048
     Dates: start: 20070828
  25. NEXIUM [Suspect]
     Active Substance: ESOMEPRAZOLE MAGNESIUM
     Indication: GASTROOESOPHAGEAL REFLUX DISEASE
     Route: 048
     Dates: start: 20071127
  26. DIOVAN [Concomitant]
     Active Substance: VALSARTAN
     Indication: BLOOD PRESSURE ABNORMAL
     Route: 065
     Dates: start: 200904, end: 201007
  27. LOSARTAN. [Concomitant]
     Active Substance: LOSARTAN
     Route: 065
     Dates: start: 20131130
  28. SPIRONOLACTONE. [Concomitant]
     Active Substance: SPIRONOLACTONE
     Route: 065
     Dates: start: 20131113
  29. ULTRAM [Concomitant]
     Active Substance: TRAMADOL HYDROCHLORIDE
     Route: 048
     Dates: start: 20150505
  30. EXFORGE [Concomitant]
     Active Substance: AMLODIPINE BESYLATE\VALSARTAN
     Route: 065
     Dates: start: 20080227
  31. NIFEDIPINE. [Concomitant]
     Active Substance: NIFEDIPINE
     Route: 065
     Dates: start: 20140429
  32. NEXIUM 24HR [Suspect]
     Active Substance: ESOMEPRAZOLE MAGNESIUM
     Route: 048
  33. METFORMIN [Concomitant]
     Active Substance: METFORMIN HYDROCHLORIDE
     Indication: DIABETES MELLITUS
     Route: 065
     Dates: start: 200708, end: 201010
  34. ROLAIDS [Concomitant]
     Active Substance: CALCIUM CARBONATE\MAGNESIUM HYDROXIDE
     Dosage: OTC
     Route: 065
     Dates: start: 2008
  35. HYOSCYAMINE. [Concomitant]
     Active Substance: HYOSCYAMINE
     Route: 065
     Dates: start: 20070907
  36. POLYMYXCIN [Concomitant]
     Route: 065
     Dates: start: 20110707
  37. PROCTOSOL [Concomitant]
     Route: 065
     Dates: start: 20110829
  38. LANTUS SOLOSTAR [Concomitant]
     Active Substance: INSULIN GLARGINE
     Route: 065
     Dates: start: 20160426
  39. DOXYCYCLINE. [Concomitant]
     Active Substance: DOXYCYCLINE
     Route: 065
     Dates: start: 20170511
  40. ONGLYZA [Concomitant]
     Active Substance: SAXAGLIPTIN HYDROCHLORIDE
     Route: 048
     Dates: start: 20131125
  41. NEXIUM [Suspect]
     Active Substance: ESOMEPRAZOLE MAGNESIUM
     Indication: GASTROOESOPHAGEAL REFLUX DISEASE
     Route: 048
     Dates: start: 20070828, end: 20110211
  42. FUROSEMIDE. [Concomitant]
     Active Substance: FUROSEMIDE
     Route: 065
     Dates: start: 20091130
  43. CHLORTHALIDONE. [Concomitant]
     Active Substance: CHLORTHALIDONE
     Route: 065
     Dates: start: 20101005
  44. LEVEMIR FLEXEPEN [Concomitant]
     Route: 065
     Dates: start: 20120519
  45. PREDNISONE. [Concomitant]
     Active Substance: PREDNISONE
     Route: 065
     Dates: start: 20131030
  46. MONTELUKAST [Concomitant]
     Active Substance: MONTELUKAST SODIUM
     Route: 065
     Dates: start: 20140220
  47. PRILOSEC [Suspect]
     Active Substance: OMEPRAZOLE MAGNESIUM
     Indication: GASTROOESOPHAGEAL REFLUX DISEASE
     Dosage: GENERIC
     Route: 065
     Dates: start: 20170506
  48. NAPROXEN. [Concomitant]
     Active Substance: NAPROXEN
     Indication: ANALGESIC THERAPY
     Route: 065
     Dates: start: 200810, end: 200912
  49. VITAMIN D [Concomitant]
     Active Substance: VITAMIN D NOS
     Indication: VITAMIN SUPPLEMENTATION
     Route: 065
     Dates: start: 2010

REACTIONS (4)
  - Chronic kidney disease [Not Recovered/Not Resolved]
  - Nephrogenic anaemia [Unknown]
  - Renal failure [Unknown]
  - Gastrooesophageal reflux disease [Not Recovered/Not Resolved]

NARRATIVE: CASE EVENT DATE: 20100525
